FAERS Safety Report 17500012 (Version 2)
Quarter: 2020Q2

REPORT INFORMATION
  Report Type: Spontaneous
  Country: US (occurrence: US)
  Receive Date: 20200304
  Receipt Date: 20200625
  Transmission Date: 20200713
  Serious: Yes (Other)
  Sender: FDA-Public Use
  Company Number: NVSC2020US061424

PATIENT
  Age: 85 Year
  Sex: Female

DRUGS (2)
  1. BEOVU [Suspect]
     Active Substance: BROLUCIZUMAB-DBLL
     Indication: NEOVASCULAR AGE-RELATED MACULAR DEGENERATION
     Dosage: 6 MG/0.05 ML, QMO
     Route: 031
     Dates: start: 20191230
  2. BEOVU [Suspect]
     Active Substance: BROLUCIZUMAB-DBLL
     Dosage: 6 MG/0.05 ML, QMO
     Route: 031
     Dates: start: 20200204, end: 20200302

REACTIONS (6)
  - Photopsia [Not Recovered/Not Resolved]
  - Anterior chamber cell [Not Recovered/Not Resolved]
  - Keratic precipitates [Unknown]
  - Vitreous floaters [Not Recovered/Not Resolved]
  - Vitritis [Not Recovered/Not Resolved]
  - Uveitis [Recovered/Resolved]

NARRATIVE: CASE EVENT DATE: 20200302
